FAERS Safety Report 8419130 (Version 4)
Quarter: 2013Q1

REPORT INFORMATION
  Report Type: Spontaneous
  Country: US (occurrence: None)
  Receive Date: 20120208
  Receipt Date: 20130204
  Transmission Date: 20140127
  Serious: Yes (Other)
  Sender: FDA-Public Use
  Company Number: MPS1-1000628

PATIENT
  Age: 22 Month
  Sex: Female
  Weight: 11 kg

DRUGS (2)
  1. ALDURAZYME [Suspect]
     Dosage: INTRAVENOUS
     Route: 042
     Dates: start: 20111220
  2. DIPHENHYDRAMINE (DIPHENHYDRAMINE) [Concomitant]

REACTIONS (9)
  - BLOOD PRESSURE DECREASED [None]
  - VOMITING [None]
  - BLOOD IMMUNOGLOBULIN G INCREASED [None]
  - PALMAR ERYTHEMA [None]
  - Rash erythematous [None]
  - Tachycardia [None]
  - Pallor [None]
  - Eyelid oedema [None]
  - Cyanosis [None]
